FAERS Safety Report 5905370-0 (Version None)
Quarter: 2008Q4

REPORT INFORMATION
  Report Type: 
  Country: None (occurrence: None)
  Receive Date: 20081001
  Receipt Date: 20080926
  Transmission Date: 20090506
  Serious: Yes (Other)
  Sender: FDA-Public Use
  Company Number: US-GENENTECH-268691

PATIENT

DRUGS (2)
  1. ERLOTINIB [Suspect]
     Indication: PLEURAL MESOTHELIOMA
     Dosage: 150 MG, QD
     Route: 048
  2. AVASTIN [Suspect]
     Indication: PLEURAL MESOTHELIOMA
     Dosage: 5 MG/KG, Q21D
     Route: 042

REACTIONS (1)
  - DRY SKIN [None]
